FAERS Safety Report 6900513-4 (Version None)
Quarter: 2010Q3

REPORT INFORMATION
  Report Type: 
  Country: None (occurrence: None)
  Receive Date: 20100803
  Receipt Date: 20100727
  Transmission Date: 20110219
  Serious: Yes (Death, Other)
  Sender: FDA-Public Use
  Company Number: CA-ASTRAZENECA-2010SE34167

PATIENT
  Sex: Female

DRUGS (2)
  1. CRESTOR [Suspect]
     Route: 048
     Dates: start: 20100501, end: 20100714
  2. COUMADIN [Concomitant]
     Route: 065

REACTIONS (6)
  - DECREASED APPETITE [None]
  - FATIGUE [None]
  - LEUKOPENIA [None]
  - MYOCARDIAL INFARCTION [None]
  - RED BLOOD CELL COUNT DECREASED [None]
  - THROMBOCYTOPENIA [None]
